FAERS Safety Report 24800512 (Version 3)
Quarter: 2025Q1

REPORT INFORMATION
  Report Type: Spontaneous
  Country: US (occurrence: US)
  Receive Date: 20250102
  Receipt Date: 20250319
  Transmission Date: 20250408
  Serious: No
  Sender: ITALFARMACO SPA
  Company Number: US-ITALFARMACO SPA-2168218

PATIENT
  Age: 18 Year
  Sex: Male
  Weight: 49.9 kg

DRUGS (4)
  1. DUVYZAT [Suspect]
     Active Substance: GIVINOSTAT
     Indication: Duchenne muscular dystrophy
     Dates: start: 20241011
  2. VITAMIN D [Concomitant]
     Active Substance: VITAMIN D NOS
  3. LOSARTAN [Concomitant]
     Active Substance: LOSARTAN
  4. EMFLAZA [Concomitant]
     Active Substance: DEFLAZACORT

REACTIONS (4)
  - Diarrhoea [Unknown]
  - Nausea [Unknown]
  - Malaise [Not Recovered/Not Resolved]
  - Vomiting [Unknown]
